FAERS Safety Report 9541574 (Version 1)
Quarter: 2013Q3

REPORT INFORMATION
  Report Type: Spontaneous
  Country: US (occurrence: None)
  Receive Date: 20130919
  Receipt Date: 20130919
  Transmission Date: 20140515
  Serious: Yes (Other)
  Sender: FDA-Public Use
  Company Number: None

PATIENT
  Age: 68 Year
  Sex: Female

DRUGS (5)
  1. ERIVEDGE [Suspect]
     Indication: DRUG-INDUCED LIVER INJURY
  2. DOXYCYCLINE [Suspect]
     Indication: DRUG-INDUCED LIVER INJURY
  3. DIOVAN [Concomitant]
  4. DOXYCYCLINE [Concomitant]
  5. TYLENOL WITH CODEINE #3 [Concomitant]

REACTIONS (3)
  - Drug-induced liver injury [None]
  - Weight decreased [None]
  - Dysgeusia [None]
